FAERS Safety Report 12439650 (Version 4)
Quarter: 2017Q1

REPORT INFORMATION
  Report Type: Spontaneous
  Country: US (occurrence: US)
  Receive Date: 20160606
  Receipt Date: 20170111
  Transmission Date: 20170428
  Serious: No
  Sender: FDA-Public Use
  Company Number: US-PFIZER INC-2016266721

PATIENT
  Sex: Male

DRUGS (1)
  1. BOSULIF [Suspect]
     Active Substance: BOSUTINIB MONOHYDRATE
     Dosage: UNK
     Dates: start: 2015

REACTIONS (5)
  - Blood magnesium abnormal [Unknown]
  - Dyspepsia [Unknown]
  - Abdominal discomfort [Recovering/Resolving]
  - Electrolyte imbalance [Unknown]
  - Blood phosphorus abnormal [Unknown]
